FAERS Safety Report 23965069 (Version 1)
Quarter: 2024Q2

REPORT INFORMATION
  Report Type: Spontaneous
  Country: US (occurrence: US)
  Receive Date: 20240612
  Receipt Date: 20240612
  Transmission Date: 20240716
  Serious: No
  Sender: FDA-Public Use
  Company Number: US-APOTEX-2023AP017621

PATIENT
  Age: 66 Year
  Sex: Female

DRUGS (3)
  1. OFLOXACIN [Suspect]
     Active Substance: OFLOXACIN
     Indication: Preoperative care
     Dosage: 1 GTT DROPS, BID (1 DROP IN THE MORNING AND 1 DROP AT NIGHT)
     Route: 047
     Dates: start: 20231128
  2. PREDNISOLONE ACETATE [Concomitant]
     Active Substance: PREDNISOLONE ACETATE
     Indication: Postoperative care
     Dosage: 1 GTT DROPS, BID (ON THE LEFT EYE)
     Route: 047
     Dates: start: 20231129
  3. KETOROLAC TROMETHAMINE [Concomitant]
     Active Substance: KETOROLAC TROMETHAMINE
     Indication: Postoperative care
     Dosage: 1 GTT DROPS, BID (ON THE LEFT EYE)
     Route: 047
     Dates: start: 20231129

REACTIONS (5)
  - Abdominal distension [Not Recovered/Not Resolved]
  - Bowel movement irregularity [Not Recovered/Not Resolved]
  - Brain fog [Not Recovered/Not Resolved]
  - Depression [Not Recovered/Not Resolved]
  - Diarrhoea [Not Recovered/Not Resolved]

NARRATIVE: CASE EVENT DATE: 20231128
